FAERS Safety Report 20923712 (Version 1)
Quarter: 2022Q2

REPORT INFORMATION
  Report Type: Spontaneous
  Country: TR (occurrence: TR)
  Receive Date: 20220607
  Receipt Date: 20220607
  Transmission Date: 20220721
  Serious: Yes (Life-Threatening, Hospitalization)
  Sender: FDA-Public Use
  Company Number: TR-NOVARTISPH-NVSC2022TR130207

PATIENT
  Sex: Male

DRUGS (6)
  1. VOLTAREN [Suspect]
     Active Substance: DICLOFENAC SODIUM
     Indication: Product used for unknown indication
     Dosage: UNK
     Route: 065
  2. IBUPROFEN\PSEUDOEPHEDRINE HYDROCHLORIDE [Suspect]
     Active Substance: IBUPROFEN\PSEUDOEPHEDRINE HYDROCHLORIDE
     Indication: Product used for unknown indication
     Dosage: UNK
     Route: 065
  3. CHLORPHENIRAMINE MALEATE\IBUPROFEN\PSEUDOEPHEDRINE HYDROCHLORIDE [Suspect]
     Active Substance: CHLORPHENIRAMINE MALEATE\IBUPROFEN\PSEUDOEPHEDRINE HYDROCHLORIDE
     Indication: Product used for unknown indication
     Dosage: UNK
     Route: 065
  4. IBUPROFEN\PSEUDOEPHEDRINE HYDROCHLORIDE [Suspect]
     Active Substance: IBUPROFEN\PSEUDOEPHEDRINE HYDROCHLORIDE
     Indication: Product used for unknown indication
     Dosage: UNK
     Route: 065
  5. THIOCOLCHICOSIDE [Suspect]
     Active Substance: THIOCOLCHICOSIDE
     Indication: Product used for unknown indication
     Dosage: UNK
     Route: 065
  6. INDAPAMIDE [Suspect]
     Active Substance: INDAPAMIDE
     Indication: Product used for unknown indication
     Dosage: UNK
     Route: 065

REACTIONS (3)
  - Suspected suicide attempt [Recovered/Resolved]
  - Imperception [Recovered/Resolved]
  - Intentional overdose [Recovered/Resolved]
